FAERS Safety Report 18763227 (Version 1)
Quarter: 2021Q1

REPORT INFORMATION
  Report Type: Spontaneous
  Country: US (occurrence: US)
  Receive Date: 20210120
  Receipt Date: 20210120
  Transmission Date: 20210419
  Serious: Yes (Other)
  Sender: FDA-Public Use
  Company Number: None

PATIENT
  Age: 35 Year
  Sex: Female

DRUGS (5)
  1. ACETAMINOPHEN. [Concomitant]
     Active Substance: ACETAMINOPHEN
  2. MULTIVITAMIN [Concomitant]
     Active Substance: VITAMINS
  3. TALTZ [Suspect]
     Active Substance: IXEKIZUMAB
     Indication: PSORIATIC ARTHROPATHY
     Dosage: ?          OTHER FREQUENCY:EVERY 2 WEEKS;?
     Route: 058
     Dates: start: 20201113, end: 20210104
  4. TRIAMCINOLONE 0.1% OINTMENT [Concomitant]
     Active Substance: TRIAMCINOLONE ACETONIDE
  5. TACROLIMUS 0.1% OINTMENT [Concomitant]
     Active Substance: TACROLIMUS

REACTIONS (5)
  - Injection site pruritus [None]
  - Injection site pain [None]
  - Injection site swelling [None]
  - Injection site reaction [None]
  - Injection site erythema [None]

NARRATIVE: CASE EVENT DATE: 20210115
